FAERS Safety Report 4850399-7 (Version None)
Quarter: 2005Q4

REPORT INFORMATION
  Report Type: 
  Country: None (occurrence: None)
  Receive Date: 20051125
  Receipt Date: 20050919
  Transmission Date: 20060501
  Serious: Yes (Hospitalization)
  Sender: FDA-Public Use
  Company Number: US-JNJFOC-20050904666

PATIENT
  Age: 73 Year
  Sex: Male
  Weight: 68.9467 kg

DRUGS (16)
  1. LEVAQUIN [Suspect]
     Indication: URINARY TRACT INFECTION
     Dosage: 500 MG, 1 IN 1 DAY, ORAL
     Route: 048
     Dates: start: 20050801, end: 20050904
  2. GLUCOSAMINE (GLUCOSAMINE) [Concomitant]
  3. ANTI OXIDANT BLEND (ALL OTHER THERAPEUTIC PRODUCTS) [Concomitant]
  4. FISH OIL (FISH OIL) [Concomitant]
  5. PLAVIX [Concomitant]
  6. CALCIUM (CALCIUM) [Concomitant]
  7. MAGNESIUM (MAGNESIUM) [Concomitant]
  8. ZINC (ZINC) [Concomitant]
  9. VITAMIN C (ASCORBIC ACID) [Concomitant]
  10. BREWERS YEAST (YEAST DRIED) [Concomitant]
  11. METHYLSULFONYLMETHAINE (METHYLSULFONAL) [Concomitant]
  12. VITAMIN E [Concomitant]
  13. POTASSIUM (POTASSIUM) [Concomitant]
  14. SELEN (SELENIUM) [Concomitant]
  15. VITAMIN D [Concomitant]
  16. FOLIC ACID [Concomitant]

REACTIONS (4)
  - FATIGUE [None]
  - HEART RATE INCREASED [None]
  - PAIN [None]
  - PYREXIA [None]
